FAERS Safety Report 4378860-2 (Version None)
Quarter: 2004Q2

REPORT INFORMATION
  Report Type: 
  Country: None (occurrence: None)
  Receive Date: 20040609
  Receipt Date: 20040414
  Transmission Date: 20050107
  Serious: Yes (Hospitalization)
  Sender: FDA-Public Use
  Company Number: F01200400794

PATIENT
  Age: 70 Year
  Sex: Female

DRUGS (21)
  1. (OXALIPLATIN) - SOLUTION - 85 MG/M2 [Suspect]
     Indication: COLORECTAL CANCER
     Dosage: 85 MG/M2 Q2W
     Route: 042
     Dates: start: 20040330, end: 20040330
  2. FLUOROURACIL [Suspect]
     Dosage: SEE IMAGE
     Route: 042
     Dates: start: 20040330, end: 20040401
  3. LEUCOVORIN - SOLUTION - 350 MG [Suspect]
     Dosage: 350 MG Q2W
     Route: 042
     Dates: start: 20040330, end: 20040330
  4. AVASTIN [Suspect]
     Dosage: 5 MG/KG OVER 30-90 MINUTES IV INFUSION ON DAY 1, Q2W
     Route: 042
     Dates: start: 20040330, end: 20040330
  5. PHENERGAN [Concomitant]
  6. FERROUS SULFATE TAB [Concomitant]
  7. SURFAK (DOCUSATE CALCIUM) [Concomitant]
  8. CALTRATE (CALCIUM CARBONATE) [Concomitant]
  9. BETAPACE [Concomitant]
  10. CIPRO [Concomitant]
  11. FLAGYL [Concomitant]
  12. PERCOCET (OXYCODONE HCL+PARACETAMOL) [Concomitant]
  13. AUGMENTIN [Concomitant]
  14. ASPIRIN (ACETYLSALIYCLIC ACID) [Concomitant]
  15. BENICAR [Concomitant]
  16. COMPAZINE [Concomitant]
  17. METAMUCIL-2 [Concomitant]
  18. MULTIVITAMIN [Concomitant]
  19. FLECAINIDE ACETATE [Concomitant]
  20. ATACAND [Concomitant]
  21. OXYCODONE [Concomitant]

REACTIONS (12)
  - AORTIC VALVE INCOMPETENCE [None]
  - ARRHYTHMIA [None]
  - ATRIAL FIBRILLATION [None]
  - BLOOD CALCIUM DECREASED [None]
  - BLOOD POTASSIUM DECREASED [None]
  - BLOOD SODIUM DECREASED [None]
  - CLOSTRIDIUM COLITIS [None]
  - CREATINE PHOSPHOKINASE DECREASED [None]
  - EJECTION FRACTION DECREASED [None]
  - PLEURAL EFFUSION [None]
  - VENTRICULAR EXTRASYSTOLES [None]
  - VENTRICULAR HYPOKINESIA [None]
